FAERS Safety Report 20207950 (Version 1)
Quarter: 2021Q4

REPORT INFORMATION
  Report Type: Spontaneous
  Country: US (occurrence: None)
  Receive Date: 20211220
  Receipt Date: 20211220
  Transmission Date: 20220303
  Serious: Yes (Death)
  Sender: FDA-Public Use
  Company Number: None

PATIENT
  Age: 81 Year
  Sex: Male

DRUGS (1)
  1. PROCRIT [Suspect]
     Active Substance: ERYTHROPOIETIN
     Dosage: OTHER QUANTITY : 10,000UNITS ;?
     Route: 058
     Dates: start: 20210108, end: 20211203

REACTIONS (1)
  - Death [None]

NARRATIVE: CASE EVENT DATE: 20211203
